FAERS Safety Report 4954542-0 (Version None)
Quarter: 2006Q1

REPORT INFORMATION
  Report Type: 
  Country: None (occurrence: None)
  Receive Date: 20060322
  Receipt Date: 20060310
  Transmission Date: 20060701
  Serious: Yes (Hospitalization, Other)
  Sender: FDA-Public Use
  Company Number: 2006036513

PATIENT
  Sex: 0

DRUGS (1)
  1. SERTRALINE [Suspect]
     Indication: MAJOR DEPRESSION

REACTIONS (5)
  - ANXIETY [None]
  - CONDITION AGGRAVATED [None]
  - DEPRESSION [None]
  - DRUG RESISTANCE [None]
  - THERAPY NON-RESPONDER [None]
